FAERS Safety Report 5060709-6 (Version None)
Quarter: 2006Q3

REPORT INFORMATION
  Report Type: 
  Country: None (occurrence: None)
  Receive Date: 20060719
  Receipt Date: 20060719
  Transmission Date: 20061208
  Serious: Yes (Life-Threatening, Hospitalization, Disabling)
  Sender: FDA-Public Use
  Company Number: None

PATIENT
  Age: 77 Year
  Sex: Male
  Weight: 88.4514 kg

DRUGS (1)
  1. CORDIS CYPHER STENT CORDIS CORPORATION [Suspect]
     Indication: CORONARY ARTERY OCCLUSION
     Dates: start: 20060712, end: 20060712

REACTIONS (11)
  - ARTERITIS [None]
  - BURNING SENSATION [None]
  - CARDIAC ENZYMES INCREASED [None]
  - CARDIAC PROCEDURE COMPLICATION [None]
  - CHEST PAIN [None]
  - CORONARY ARTERY REOCCLUSION [None]
  - CORONARY ARTERY STENOSIS [None]
  - MEDICAL DEVICE COMPLICATION [None]
  - MYOCARDIAL INFARCTION [None]
  - NAUSEA [None]
  - PAIN IN EXTREMITY [None]
